FAERS Safety Report 8574787-0 (Version None)
Quarter: 2012Q3

REPORT INFORMATION
  Report Type: 
  Country: None (occurrence: None)
  Receive Date: 20120807
  Receipt Date: 20120705
  Transmission Date: 20120928
  Serious: No
  Sender: FDA-Public Use
  Company Number: US-009507513-1207USA003113

PATIENT

DRUGS (5)
  1. TRAMADOL HYDROCHLORIDE [Concomitant]
     Dosage: 200 MG, UNK
  2. VICTRELIS [Suspect]
     Dosage: 800 MG, TID
     Route: 048
  3. LEVOTHYROXINE SODIUM [Concomitant]
     Dosage: 100 MICROGRAM, UNK
  4. REBETOL [Concomitant]
     Dosage: 200 MG, UNK
  5. PEGASYS [Concomitant]
     Dosage: 180 MICROGRAM, QM

REACTIONS (5)
  - PAIN [None]
  - MUSCLE SPASMS [None]
  - RECTAL LESION [None]
  - DIARRHOEA [None]
  - RASH [None]
